FAERS Safety Report 7451952-7 (Version None)
Quarter: 2011Q2

REPORT INFORMATION
  Report Type: 
  Country: None (occurrence: None)
  Receive Date: 20110502
  Receipt Date: 20110428
  Transmission Date: 20111010
  Serious: No
  Sender: FDA-Public Use
  Company Number: US-B.I. PHARMACEUTICALS,INC./RIDGEFIELD-2011-BP-12125BP

PATIENT
  Sex: Female

DRUGS (4)
  1. ZANTAC [Suspect]
  2. ZYRTEC [Suspect]
  3. SINGULAIR [Suspect]
  4. ALLEGRA [Suspect]
     Route: 048

REACTIONS (5)
  - AUTOIMMUNE THYROIDITIS [None]
  - DRUG HYPERSENSITIVITY [None]
  - SWELLING FACE [None]
  - URTICARIA [None]
  - PRURITUS [None]
